FAERS Safety Report 15346221 (Version 2)
Quarter: 2018Q4

REPORT INFORMATION
  Report Type: Report from Study
  Country: US (occurrence: US)
  Receive Date: 20180904
  Receipt Date: 20181109
  Transmission Date: 20190204
  Serious: No
  Sender: FDA-Public Use
  Company Number: PHEH2018US035494

PATIENT
  Sex: Female

DRUGS (1)
  1. ENTRESTO [Suspect]
     Active Substance: SACUBITRIL\VALSARTAN
     Indication: CARDIAC FAILURE
     Dosage: UNK
     Route: 048

REACTIONS (6)
  - Swelling face [Unknown]
  - Arthralgia [Unknown]
  - Peripheral swelling [Unknown]
  - Headache [Unknown]
  - Eye swelling [Unknown]
  - Dyspnoea [Unknown]
